FAERS Safety Report 10276794 (Version 1)
Quarter: 2014Q3

REPORT INFORMATION
  Report Type: Spontaneous
  Country: US (occurrence: US)
  Receive Date: 20140703
  Receipt Date: 20140703
  Transmission Date: 20150326
  Serious: Yes (Other)
  Sender: FDA-Public Use
  Company Number: US-TEVA-491463USA

PATIENT
  Sex: Female

DRUGS (3)
  1. COPAXONE [Suspect]
     Active Substance: GLATIRAMER ACETATE
     Dates: start: 20060601, end: 20140513
  2. AMPYRA [Suspect]
     Active Substance: DALFAMPRIDINE
     Dates: start: 20100301
  3. NICOTINIC ACID [Suspect]
     Active Substance: NIACIN

REACTIONS (9)
  - Throat tightness [Recovered/Resolved]
  - Paraesthesia [Unknown]
  - Wrong technique in drug usage process [Unknown]
  - Feeling hot [Unknown]
  - Back pain [Recovered/Resolved]
  - Pain [Unknown]
  - Shock [Recovered/Resolved]
  - Adverse event [Not Recovered/Not Resolved]
  - Flushing [Unknown]
